FAERS Safety Report 8901737 (Version 1)
Quarter: 2012Q4

REPORT INFORMATION
  Report Type: Spontaneous
  Country: CA (occurrence: None)
  Receive Date: 20121101
  Receipt Date: 20121101
  Transmission Date: 20130627
  Serious: Yes (Life-Threatening, Other)
  Sender: FDA-Public Use
  Company Number: FK201203195

PATIENT
  Age: 59 Year
  Sex: Female
  Weight: 65 kg

DRUGS (5)
  1. VANCOMYCIN [Suspect]
     Indication: PRODUCT USED FOR UNKNOWN INDICATION
     Dosage: 1 every 8 hours (not otherwise specified)
     Route: 042
  2. MERREM [Suspect]
     Indication: PRODUCT USED FOR UNKNOWN INDICATION
     Dosage: 1 every eight hours, (not otherwise specified)
     Route: 042
  3. ACETAMINOPHEN (PARACETAMOL),ACETYLSAL ACID,CAFFEINE CITRATE [Concomitant]
  4. LORAZEPAM (LORAZEPAM) [Concomitant]
  5. VENLAFAXINE WR [Concomitant]

REACTIONS (3)
  - Epistaxis [None]
  - Haematuria [None]
  - Thrombocytopenia [None]
